FAERS Safety Report 15282787 (Version 1)
Quarter: 2018Q3

REPORT INFORMATION
  Report Type: Spontaneous
  Country: FR (occurrence: FR)
  Receive Date: 20180816
  Receipt Date: 20180816
  Transmission Date: 20181010
  Serious: Yes (Death, Other)
  Sender: FDA-Public Use
  Company Number: FR-AUROBINDO-AUR-APL-2018-041735

PATIENT
  Age: 64 Year
  Sex: Female
  Weight: 86 kg

DRUGS (5)
  1. ARGANOVA [Suspect]
     Active Substance: ARGATROBAN
     Indication: PULMONARY EMBOLISM
     Dosage: UNK ()
     Route: 041
     Dates: start: 20180427
  2. COAPROVEL [Concomitant]
     Active Substance: HYDROCHLOROTHIAZIDE\IRBESARTAN
     Indication: HYPERTENSION
     Dosage: 1 DF, QD
     Route: 048
     Dates: start: 20180408
  3. ALDACTONE [Concomitant]
     Active Substance: SPIRONOLACTONE
     Indication: ASCITES
     Dosage: 1 DF, QD
     Route: 048
     Dates: start: 20180328, end: 20180408
  4. METFORMIN [Suspect]
     Active Substance: METFORMIN HYDROCHLORIDE
     Indication: TYPE 1 DIABETES MELLITUS
     Dosage: 2 G, QD
     Route: 048
     Dates: start: 20180408
  5. LASILIX                            /00032601/ [Concomitant]
     Active Substance: FUROSEMIDE
     Indication: ASCITES
     Dosage: 1 DF, QD
     Route: 048
     Dates: start: 20180328, end: 20180408

REACTIONS (3)
  - Shock haemorrhagic [Fatal]
  - Drug level increased [Fatal]
  - Lactic acidosis [Fatal]

NARRATIVE: CASE EVENT DATE: 20180409
